FAERS Safety Report 4262972-8 (Version None)
Quarter: 2004Q1

REPORT INFORMATION
  Report Type: 
  Country: None (occurrence: None)
  Receive Date: 20040102
  Receipt Date: 20040102
  Transmission Date: 20041129
  Serious: No
  Sender: FDA-Public Use
  Company Number: None

PATIENT
  Age: 60 Year
  Sex: Female
  Weight: 99.7913 kg

DRUGS (1)
  1. FLUOXETINE [Suspect]
     Indication: GENERALISED ANXIETY DISORDER
     Dosage: 40 MG

REACTIONS (1)
  - DRUG INEFFECTIVE [None]
